FAERS Safety Report 12226684 (Version 1)
Quarter: 2016Q1

REPORT INFORMATION
  Report Type: Spontaneous
  Country: US (occurrence: US)
  Receive Date: 20160331
  Receipt Date: 20160331
  Transmission Date: 20160526
  Serious: No
  Sender: FDA-Public Use
  Company Number: US-009507513-1603USA013108

PATIENT
  Age: 36 Year
  Sex: Female
  Weight: 151.47 kg

DRUGS (1)
  1. NEXPLANON [Suspect]
     Active Substance: ETONOGESTREL
     Dosage: UNK
     Dates: start: 20131112

REACTIONS (2)
  - Menstruation irregular [Unknown]
  - Device breakage [Unknown]

NARRATIVE: CASE EVENT DATE: 20160321
